FAERS Safety Report 4370775-9 (Version None)
Quarter: 2004Q2

REPORT INFORMATION
  Report Type: 
  Country: None (occurrence: None)
  Receive Date: 20040603
  Receipt Date: 20040603
  Transmission Date: 20050107
  Serious: Yes (Other)
  Sender: FDA-Public Use
  Company Number: None

PATIENT
  Age: 29 Year
  Sex: Female
  Weight: 61.2356 kg

DRUGS (1)
  1. BOTULINIUM TOXIN TYPE A (BOTOX) ALLERGAN [Suspect]
     Indication: MIGRAINE PROPHYLAXIS
     Dosage: 149 UNITS SUB Q X1 FOR 3 MOS
     Dates: start: 20040504

REACTIONS (1)
  - PREGNANCY TEST POSITIVE [None]
